FAERS Safety Report 9926239 (Version 2)
Quarter: 2014Q1

REPORT INFORMATION
  Report Type: Spontaneous
  Country: US (occurrence: US)
  Receive Date: 20140226
  Receipt Date: 20140226
  Transmission Date: 20141002
  Serious: Yes (Disabling)
  Sender: FDA-Public Use
  Company Number: US-US-EMD SERONO, INC.-7037847

PATIENT
  Sex: Male

DRUGS (1)
  1. REBIF [Suspect]
     Indication: MULTIPLE SCLEROSIS
     Route: 058
     Dates: start: 20070720

REACTIONS (7)
  - Mobility decreased [Not Recovered/Not Resolved]
  - Road traffic accident [Unknown]
  - Lower limb fracture [Unknown]
  - Fine motor delay [Not Recovered/Not Resolved]
  - Muscular weakness [Unknown]
  - Somnolence [Unknown]
  - Pain [Unknown]
